FAERS Safety Report 8240289-4 (Version None)
Quarter: 2012Q1

REPORT INFORMATION
  Report Type: 
  Country: None (occurrence: None)
  Receive Date: 20120328
  Receipt Date: 20120328
  Transmission Date: 20120608
  Serious: Yes (Life-Threatening, Hospitalization)
  Sender: FDA-Public Use
  Company Number: None

PATIENT
  Age: 78 Year
  Sex: Female
  Weight: 104.9 kg

DRUGS (2)
  1. FAMOTIDINE [Concomitant]
     Route: 048
  2. ARGATROBAN [Suspect]
     Indication: HEPARIN-INDUCED THROMBOCYTOPENIA
     Dosage: 0.1MG/MIN
     Route: 041
     Dates: start: 20120229, end: 20120229

REACTIONS (1)
  - ANAPHYLACTOID REACTION [None]
